FAERS Safety Report 17273782 (Version 1)
Quarter: 2020Q1

REPORT INFORMATION
  Report Type: Spontaneous
  Country: US (occurrence: US)
  Receive Date: 20200115
  Receipt Date: 20200115
  Transmission Date: 20200409
  Serious: No
  Sender: FDA-Public Use
  Company Number: US-PERRIGO-19US010822

PATIENT
  Age: 68 Year
  Sex: Female
  Weight: 99.77 kg

DRUGS (2)
  1. IBUPROFEN. [Suspect]
     Active Substance: IBUPROFEN
     Dosage: 600 MG, EVERY 8 HOURS
     Route: 048
     Dates: start: 20190831, end: 20190902
  2. IBUPROFEN. [Suspect]
     Active Substance: IBUPROFEN
     Indication: PAIN
     Dosage: 200 TO 400 MG, PRN
     Route: 048
     Dates: start: 201902, end: 20190830

REACTIONS (2)
  - Incorrect dose administered [Recovered/Resolved]
  - Cough [Recovering/Resolving]

NARRATIVE: CASE EVENT DATE: 201902
